FAERS Safety Report 16843277 (Version 1)
Quarter: 2019Q3

REPORT INFORMATION
  Report Type: Spontaneous
  Country: GB (occurrence: GB)
  Receive Date: 20190924
  Receipt Date: 20190924
  Transmission Date: 20191005
  Serious: Yes (Other)
  Sender: FDA-Public Use
  Company Number: GB-TEVA-2019-GB-1111057

PATIENT
  Age: 81 Year
  Sex: Female
  Weight: 102 kg

DRUGS (17)
  1. WARFARIN SODIUM. [Concomitant]
     Active Substance: WARFARIN SODIUM
     Dosage: DOSE PER ADVICE FROM ANTICOAGULATION CLINIC / INTERNATIONAL NORMALISED RATIO.
     Dates: start: 20180215
  2. ALFACALCIDOL [Concomitant]
     Active Substance: ALFACALCIDOL
     Dosage: 1 DOSAGE FORMS
     Dates: start: 20190528
  3. TROSPIUM [Concomitant]
     Active Substance: TROSPIUM
     Indication: BLADDER DISORDER
     Dosage: 1 DOSAGE FORMS
     Dates: start: 20111130
  4. DOUBLEBASE [Concomitant]
     Active Substance: ISOPROPYL MYRISTATE\PARAFFIN
     Dates: start: 20190801
  5. PANTOPRAZOLE [Concomitant]
     Active Substance: PANTOPRAZOLE
     Dosage: 1 DOSAGE FORMS
     Dates: start: 20181128
  6. PARACETAMOL [Concomitant]
     Active Substance: ACETAMINOPHEN
     Dosage: TAKE 1 OR 2 UP TO 4 TIMES PER DAY.
     Dates: start: 20190429
  7. ZOMORPH [Concomitant]
     Active Substance: MORPHINE SULFATE
     Dosage: 1 DOSAGE FORMS
     Dates: start: 20181112
  8. MORPHINE SULFATE. [Concomitant]
     Active Substance: MORPHINE SULFATE
     Indication: PAIN
     Dosage: 1.25 ML, FOUR TIMES A DAY.
     Dates: start: 20181128
  9. CODEINE PHOSPHATE [Concomitant]
     Active Substance: CODEINE PHOSPHATE
     Indication: PAIN
     Dosage: 1 DOSAGE FORMS, 4 TIMES/DAY.
     Dates: start: 20190617
  10. CASSIA [Concomitant]
     Dosage: 1 DOSAGE FORMS, AT NIGHT.
     Dates: start: 20181003
  11. DIGOXIN. [Concomitant]
     Active Substance: DIGOXIN
     Dosage: 1 DOSAGE FORMS
     Dates: start: 20181128
  12. NITROFURANTOIN. [Suspect]
     Active Substance: NITROFURANTOIN
     Dosage: 100 MILIGRAM
     Dates: start: 20190828
  13. ARANESP [Concomitant]
     Active Substance: DARBEPOETIN ALFA
     Dosage: USE AS DIRECTED.
     Dates: start: 20180129
  14. FULTIUM-D3 [Concomitant]
     Active Substance: CHOLECALCIFEROL
     Dosage: 1 DOSAGE FORMS
     Dates: start: 20190822
  15. BISOPROLOL [Concomitant]
     Active Substance: BISOPROLOL
     Dosage: 1 DOSAGE FORMS
     Dates: start: 20181210
  16. HUMULIN M3 [Concomitant]
     Active Substance: INSULIN HUMAN
     Dosage: USE AS DIRECTED
     Dates: start: 20160608
  17. BUMETANIDE. [Concomitant]
     Active Substance: BUMETANIDE
     Dosage: TAKE ONE IN A MORNING AND ONE IN THE AFTERNOON., 2 DOSAGE FORMS
     Dates: start: 20190227

REACTIONS (4)
  - Rash [Unknown]
  - Wheezing [Recovered/Resolved]
  - Chest discomfort [Unknown]
  - Pharyngeal swelling [Unknown]

NARRATIVE: CASE EVENT DATE: 20190828
